FAERS Safety Report 6567121-9 (Version None)
Quarter: 2010Q1

REPORT INFORMATION
  Report Type: 
  Country: None (occurrence: None)
  Receive Date: 20100202
  Receipt Date: 20100126
  Transmission Date: 20100710
  Serious: Yes (Other)
  Sender: FDA-Public Use
  Company Number: BR-PFIZER INC-2010011143

PATIENT
  Age: 50 Year
  Sex: Female
  Weight: 55 kg

DRUGS (4)
  1. CHAMPIX [Suspect]
     Indication: TOBACCO USER
     Dosage: 1 MG, DAILY
     Route: 048
     Dates: start: 20100102
  2. FRONTAL [Concomitant]
     Dosage: UNK
  3. DIAZEPAM [Concomitant]
     Dosage: UNK
  4. HERBAL PREPARATION [Concomitant]
     Dosage: UNK

REACTIONS (3)
  - HYPOTENSION [None]
  - VISION BLURRED [None]
  - VISUAL FIELD DEFECT [None]
